FAERS Safety Report 7319632-6 (Version None)
Quarter: 2011Q1

REPORT INFORMATION
  Report Type: 
  Country: None (occurrence: None)
  Receive Date: 20110228
  Receipt Date: 20100623
  Transmission Date: 20110831
  Serious: No
  Sender: FDA-Public Use
  Company Number: A0866764A

PATIENT
  Age: 59 Year

DRUGS (4)
  1. ZOLOFT [Concomitant]
  2. LAMICTAL [Suspect]
     Dosage: 50MG PER DAY
     Route: 048
     Dates: start: 20100401, end: 20100601
  3. LUNESTA [Concomitant]
  4. VALIUM [Concomitant]

REACTIONS (1)
  - MENTAL DISORDER [None]
